FAERS Safety Report 23805258 (Version 1)
Quarter: 2024Q2

REPORT INFORMATION
  Report Type: Spontaneous
  Country: AU (occurrence: AU)
  Receive Date: 20240502
  Receipt Date: 20240502
  Transmission Date: 20240716
  Serious: Yes (Hospitalization, Other)
  Sender: FDA-Public Use
  Company Number: None

PATIENT
  Age: 55 Year
  Sex: Female

DRUGS (1)
  1. SAXENDA [Suspect]
     Active Substance: LIRAGLUTIDE
     Indication: Product used for unknown indication
     Dosage: UNK

REACTIONS (4)
  - Cholangitis [Not Recovered/Not Resolved]
  - Pancreatitis [Recovering/Resolving]
  - Hepatic necrosis [Unknown]
  - Hepatitis [Unknown]

NARRATIVE: CASE EVENT DATE: 20230110
